FAERS Safety Report 8818396 (Version 1)
Quarter: 2012Q4

REPORT INFORMATION
  Report Type: 
  Country: US (occurrence: US)
  Receive Date: 20121001
  Receipt Date: 20121001
  Transmission Date: 20130627
  Serious: No
  Sender: FDA-Public Use
  Company Number: US-SANOFI-AVENTIS-2012SA018901

PATIENT
  Age: 78 Year
  Sex: Male
  Weight: 90.7 kg

DRUGS (8)
  1. ELIGARD [Suspect]
     Indication: PROSTATE CANCER
     Route: 065
     Dates: start: 20120222, end: 20120222
  2. ELIGARD [Suspect]
     Indication: PROSTATE CANCER
     Route: 065
     Dates: start: 2011, end: 2011
  3. TIOTROPIUM [Concomitant]
  4. OMEPRAZOLE [Concomitant]
  5. TAMSULOSIN [Concomitant]
  6. VERAPAMIL [Concomitant]
  7. SUCRALFATE [Concomitant]
  8. LISINOPRIL [Concomitant]

REACTIONS (2)
  - Oedema peripheral [Not Recovered/Not Resolved]
  - Pruritus [Not Recovered/Not Resolved]
